FAERS Safety Report 25027071 (Version 1)
Quarter: 2025Q1

REPORT INFORMATION
  Report Type: Spontaneous
  Country: US (occurrence: US)
  Receive Date: 20250301
  Receipt Date: 20250301
  Transmission Date: 20250408
  Serious: No
  Sender: SANOFI AVENTIS
  Company Number: US-SA-2025SA057989

PATIENT
  Sex: Male

DRUGS (15)
  1. DUPIXENT [Suspect]
     Active Substance: DUPILUMAB
     Indication: Asthma
     Route: 058
  2. FLUTICASONE [Concomitant]
     Active Substance: FLUTICASONE
  3. LEVOCETIRIZINE [Concomitant]
     Active Substance: LEVOCETIRIZINE
  4. PRILOSEC [Concomitant]
     Active Substance: OMEPRAZOLE MAGNESIUM
  5. SYMBICORT [Concomitant]
     Active Substance: BUDESONIDE\FORMOTEROL FUMARATE DIHYDRATE
  6. BREZTRI [Concomitant]
     Active Substance: BUDESONIDE\FORMOTEROL\GLYCOPYRROLATE
  7. COZAAR [Concomitant]
     Active Substance: LOSARTAN POTASSIUM
  8. FLONASE ALLERGY RELIEF [Concomitant]
     Active Substance: FLUTICASONE PROPIONATE
  9. MELOXICAM [Concomitant]
     Active Substance: MELOXICAM
  10. NORVASC [Concomitant]
     Active Substance: AMLODIPINE BESYLATE
  11. OMEPRAZOLE [Concomitant]
     Active Substance: OMEPRAZOLE
  12. PRAVASTATIN [Concomitant]
     Active Substance: PRAVASTATIN
  13. PROAIR RESPICLICK [Concomitant]
     Active Substance: ALBUTEROL SULFATE
  14. VITAMIN D NOS [Concomitant]
     Active Substance: CHOLECALCIFEROL\ERGOCALCIFEROL
  15. XYZAL ALLERGY 24HR [Concomitant]
     Active Substance: LEVOCETIRIZINE DIHYDROCHLORIDE

REACTIONS (2)
  - Injection site erythema [Unknown]
  - Injection site pruritus [Unknown]
